FAERS Safety Report 14441954 (Version 1)
Quarter: 2018Q1

REPORT INFORMATION
  Report Type: Spontaneous
  Country: IT (occurrence: IT)
  Receive Date: 20180125
  Receipt Date: 20180125
  Transmission Date: 20180509
  Serious: Yes (Other)
  Sender: FDA-Public Use
  Company Number: IT-PFIZER INC-2018029815

PATIENT
  Age: 47 Year
  Sex: Female

DRUGS (2)
  1. LYRICA [Suspect]
     Active Substance: PREGABALIN
     Dosage: 150 MG, DAILY (75 MG TWICE DAILY, AT 10:00 AM AND 07:00 PM)
     Route: 048
     Dates: end: 20180122
  2. LYRICA [Suspect]
     Active Substance: PREGABALIN
     Indication: INTERVERTEBRAL DISC PROTRUSION
     Dosage: 75 MG, DAILY (AT 07:00 PM)
     Route: 048
     Dates: start: 20170609

REACTIONS (10)
  - Feeling abnormal [Unknown]
  - Seizure [Not Recovered/Not Resolved]
  - Hypertension [Not Recovered/Not Resolved]
  - Headache [Not Recovered/Not Resolved]
  - Intentional product misuse [Unknown]
  - Anxiety [Not Recovered/Not Resolved]
  - Pruritus [Unknown]
  - Head discomfort [Unknown]
  - Insomnia [Unknown]
  - Nervousness [Not Recovered/Not Resolved]
